FAERS Safety Report 6053987-8 (Version None)
Quarter: 2009Q1

REPORT INFORMATION
  Report Type: 
  Country: None (occurrence: None)
  Receive Date: 20090127
  Receipt Date: 20090119
  Transmission Date: 20090719
  Serious: Yes (Hospitalization)
  Sender: FDA-Public Use
  Company Number: ES-BRISTOL-MYERS SQUIBB COMPANY-14412084

PATIENT
  Age: 49 Year
  Sex: Female

DRUGS (2)
  1. LYSODREN [Suspect]
     Indication: ADRENOCORTICAL CARCINOMA
     Dosage: 5G/DAY TILL 22-OCT-2008 REINTRODUCED ON 31OCT08 AT 2G/DAY.
  2. ASTONIN-H [Concomitant]
     Indication: ADRENOCORTICAL CARCINOMA

REACTIONS (4)
  - ASTHENIA [None]
  - CHEMOTHERAPEUTIC DRUG LEVEL ABOVE THERAPEUTIC [None]
  - PERFORMANCE STATUS DECREASED [None]
  - SOMNOLENCE [None]
